FAERS Safety Report 9050012 (Version 1)
Quarter: 2013Q1

REPORT INFORMATION
  Report Type: Spontaneous
  Country: US (occurrence: US)
  Receive Date: 20130205
  Receipt Date: 20130205
  Transmission Date: 20140127
  Serious: No
  Sender: FDA-Public Use
  Company Number: US-GLAXOSMITHKLINE-A0971644A

PATIENT
  Age: 47 Year
  Sex: Male

DRUGS (15)
  1. ARIXTRA [Suspect]
     Indication: DEEP VEIN THROMBOSIS
     Dosage: 10MG PER DAY
     Route: 058
     Dates: start: 201102
  2. LYRICA [Suspect]
     Indication: MYALGIA
     Dosage: 100MG THREE TIMES PER DAY
     Route: 048
     Dates: start: 201102
  3. NAPROXEN SODIUM [Concomitant]
  4. TRUVADA [Concomitant]
  5. ISENTRESS [Concomitant]
  6. CRESTOR [Concomitant]
  7. FUROSEMIDE [Concomitant]
  8. FOLIC ACID [Concomitant]
  9. LORATADINE [Concomitant]
  10. METHOCARBAMOL [Concomitant]
  11. LORAZEPAM [Concomitant]
  12. AMBIEN [Concomitant]
  13. TESTIM [Concomitant]
  14. LYRICA [Concomitant]
  15. PERCOCET [Concomitant]

REACTIONS (2)
  - Weight increased [Not Recovered/Not Resolved]
  - Asthenia [Unknown]
